FAERS Safety Report 8153506-6 (Version None)
Quarter: 2012Q1

REPORT INFORMATION
  Report Type: 
  Country: None (occurrence: None)
  Receive Date: 20120221
  Receipt Date: 20120216
  Transmission Date: 20120608
  Serious: Yes (Hospitalization)
  Sender: FDA-Public Use
  Company Number: US-GILEAD-2012-0049634

PATIENT
  Sex: Female

DRUGS (2)
  1. REMODULIN [Concomitant]
  2. LETAIRIS [Suspect]
     Indication: PULMONARY ARTERIAL HYPERTENSION
     Dosage: 10 MG, UNK
     Route: 048
     Dates: start: 20110224

REACTIONS (6)
  - BLOOD POTASSIUM DECREASED [None]
  - SYNCOPE [None]
  - HYPOTENSION [None]
  - DEVICE RELATED INFECTION [None]
  - DELIRIUM [None]
  - PYREXIA [None]
